FAERS Safety Report 12640707 (Version 2)
Quarter: 2016Q3

REPORT INFORMATION
  Report Type: Spontaneous
  Country: AU (occurrence: AU)
  Receive Date: 20160810
  Receipt Date: 20160930
  Transmission Date: 20161109
  Serious: Yes (Hospitalization, Other)
  Sender: FDA-Public Use
  Company Number: AU-AMGEN-AUSSL2016101357

PATIENT
  Sex: Female

DRUGS (1)
  1. REPATHA [Suspect]
     Active Substance: EVOLOCUMAB
     Indication: TYPE IIA HYPERLIPIDAEMIA
     Dosage: 140 MG, FORTNIGHTLY
     Route: 058
     Dates: start: 20160408

REACTIONS (8)
  - Cardiac disorder [Recovering/Resolving]
  - Inappropriate schedule of drug administration [Unknown]
  - Sepsis [Recovering/Resolving]
  - Staphylococcal infection [Recovering/Resolving]
  - Intestinal obstruction [Recovering/Resolving]
  - Abdominal adhesions [Recovering/Resolving]
  - Lung disorder [Recovering/Resolving]
  - Fatigue [Unknown]
